FAERS Safety Report 9482880 (Version 1)
Quarter: 2013Q3

REPORT INFORMATION
  Report Type: Report from Study
  Country: CA (occurrence: CA)
  Receive Date: 20130828
  Receipt Date: 20130828
  Transmission Date: 20140515
  Serious: Yes (Other)
  Sender: FDA-Public Use
  Company Number: CA-JNJFOC-20130814095

PATIENT
  Sex: Male
  Weight: 75.5 kg

DRUGS (4)
  1. REMICADE [Suspect]
     Indication: RHEUMATOID ARTHRITIS
     Route: 042
     Dates: start: 200211, end: 20130821
  2. METHOTREXATE [Concomitant]
     Route: 048
  3. HYDROXYCHLOROQUINE [Concomitant]
     Route: 048
  4. GOLD [Concomitant]
     Route: 030

REACTIONS (1)
  - Skin cancer [Not Recovered/Not Resolved]
